FAERS Safety Report 5710525-4 (Version None)
Quarter: 2008Q2

REPORT INFORMATION
  Report Type: 
  Country: None (occurrence: None)
  Receive Date: 20080415
  Receipt Date: 20080331
  Transmission Date: 20081010
  Serious: Yes (Death, Hospitalization)
  Sender: FDA-Public Use
  Company Number: 2008-02169

PATIENT
  Age: 69 Year
  Sex: Male
  Weight: 82 kg

DRUGS (14)
  1. FORTAMET [Suspect]
     Indication: DRUG USE FOR UNKNOWN INDICATION
  2. PREDNISONE TAB [Suspect]
     Indication: DRUG USE FOR UNKNOWN INDICATION
  3. IRINOTECAN HCL [Suspect]
     Indication: GLIOBLASTOMA MULTIFORME
     Dosage: 125 MG/M2, DAYS 2 AND 15, INTRAVENOUS
     Route: 042
     Dates: start: 20070817, end: 20080108
  4. BEVACIZUMAB(BEVACIZUMAB) [Suspect]
     Indication: GLIOBLASTOMA MULTIFORME
     Dosage: 10 MG/KG, ON DAYS 1 AND 15, INTRAVENOUS
     Route: 042
     Dates: start: 20070817, end: 20080108
  5. ENOXAPARIN SODIUM [Suspect]
     Indication: DRUG USE FOR UNKNOWN INDICATION
  6. FLUDRICORTISONE(FLUDRICORTISONE) [Suspect]
     Indication: DRUG USE FOR UNKNOWN INDICATION
  7. OXYCODONE HCL [Suspect]
     Indication: DRUG USE FOR UNKNOWN INDICATION
  8. OXYCONTIN [Suspect]
     Indication: DRUG USE FOR UNKNOWN INDICATION
  9. PAXIL [Suspect]
     Indication: DRUG USE FOR UNKNOWN INDICATION
  10. PREVACID [Suspect]
     Indication: DRUG USE FOR UNKNOWN INDICATION
  11. SYNTHROID [Suspect]
     Indication: DRUG USE FOR UNKNOWN INDICATION
  12. TOPAMAX [Suspect]
     Indication: DRUG USE FOR UNKNOWN INDICATION
  13. WARFARIN SODIUM [Suspect]
     Indication: DRUG USE FOR UNKNOWN INDICATION
  14. DECADRON [Concomitant]

REACTIONS (26)
  - ASTHENIA [None]
  - BACK PAIN [None]
  - BLOOD GLUCOSE DECREASED [None]
  - BLOOD GLUCOSE INCREASED [None]
  - CEREBRAL HAEMORRHAGE [None]
  - CEREBRAL ISCHAEMIA [None]
  - CEREBROVASCULAR ACCIDENT [None]
  - CONFUSIONAL STATE [None]
  - DEEP VEIN THROMBOSIS [None]
  - DEPRESSED LEVEL OF CONSCIOUSNESS [None]
  - DYSARTHRIA [None]
  - EMBOLISM [None]
  - ENCEPHALOPATHY [None]
  - GAIT DISTURBANCE [None]
  - HAEMATOCRIT DECREASED [None]
  - HEADACHE [None]
  - LYMPHOCYTE COUNT DECREASED [None]
  - MENTAL STATUS CHANGES [None]
  - MUSCULAR WEAKNESS [None]
  - NEUROPATHY PERIPHERAL [None]
  - PERIPHERAL MOTOR NEUROPATHY [None]
  - PLATELET COUNT DECREASED [None]
  - SOMNOLENCE [None]
  - SPEECH DISORDER [None]
  - THROMBOSIS [None]
  - WEIGHT DECREASED [None]
